FAERS Safety Report 12419891 (Version 1)
Quarter: 2016Q2

REPORT INFORMATION
  Report Type: Spontaneous
  Country: US (occurrence: US)
  Receive Date: 20160531
  Receipt Date: 20160531
  Transmission Date: 20160815
  Serious: Yes (Hospitalization)
  Sender: FDA-Public Use
  Company Number: US-BAYER-2016-102444

PATIENT
  Age: 79 Year
  Sex: Male
  Weight: 91.16 kg

DRUGS (2)
  1. CORICIDIN HBP CHEST CONGESTION AND COUGH [Suspect]
     Active Substance: DEXTROMETHORPHAN HYDROBROMIDE\GUAIFENESIN
     Dosage: UNK
  2. CORICIDIN HBP COLD AND FLU [Suspect]
     Active Substance: ACETAMINOPHEN\CHLORPHENIRAMINE MALEATE

REACTIONS (6)
  - Hospitalisation [None]
  - Rhinorrhoea [None]
  - Cough [None]
  - Expired product administered [None]
  - Weight decreased [None]
  - Eating disorder [None]

NARRATIVE: CASE EVENT DATE: 201512
